FAERS Safety Report 10712958 (Version 1)
Quarter: 2015Q1

REPORT INFORMATION
  Report Type: Spontaneous
  Country: US (occurrence: US)
  Receive Date: 20150115
  Receipt Date: 20150115
  Transmission Date: 20150721
  Serious: Yes (Hospitalization)
  Sender: FDA-Public Use
  Company Number: US-UCBSA-2014022899

PATIENT
  Age: 52 Year
  Sex: Male
  Weight: 94 kg

DRUGS (2)
  1. VIMPAT [Suspect]
     Active Substance: LACOSAMIDE
     Indication: CLONIC CONVULSION
     Dosage: 150 MG, 2X/DAY (BID)
     Route: 048
     Dates: start: 201403, end: 20141227
  2. MULTIVITAMIN [Concomitant]
     Active Substance: VITAMINS
     Indication: SUPPLEMENTATION THERAPY
     Dosage: ONE DAILY
     Route: 048

REACTIONS (2)
  - Viral infection [Recovered/Resolved]
  - Seizure [Recovered/Resolved]

NARRATIVE: CASE EVENT DATE: 2014
